APPROVED DRUG PRODUCT: ANAGRELIDE HYDROCHLORIDE
Active Ingredient: ANAGRELIDE HYDROCHLORIDE
Strength: EQ 1MG BASE
Dosage Form/Route: CAPSULE;ORAL
Application: A076683 | Product #002
Applicant: CHARTWELL RX SCIENCES LLC
Approved: Apr 18, 2005 | RLD: No | RS: No | Type: DISCN